FAERS Safety Report 15091641 (Version 1)
Quarter: 2018Q2

REPORT INFORMATION
  Report Type: Report from Study
  Country: US (occurrence: US)
  Receive Date: 20180629
  Receipt Date: 20180629
  Transmission Date: 20180711
  Serious: No
  Sender: FDA-Public Use
  Company Number: US-AMGEN-USASP2011023679

PATIENT
  Age: 74 Year
  Sex: Female

DRUGS (13)
  1. PROLIA [Suspect]
     Active Substance: DENOSUMAB
     Indication: OSTEOPOROSIS POSTMENOPAUSAL
     Dosage: 60 MG, Q6MO
     Dates: start: 201102
  2. GABAPENTIN. [Concomitant]
     Active Substance: GABAPENTIN
  3. MULTIVITAMIN                       /00097801/ [Concomitant]
     Active Substance: VITAMINS
  4. ACYCLOVIR                          /00587301/ [Concomitant]
     Active Substance: ACYCLOVIR
  5. TRAMADOL. [Concomitant]
     Active Substance: TRAMADOL
     Dosage: 50 MG, PRN
  6. MAGNESIUM OXIDE. [Concomitant]
     Active Substance: MAGNESIUM OXIDE
     Dosage: 800 MG, BID
     Route: 048
  7. VITAMIN D                          /00107901/ [Concomitant]
     Active Substance: ERGOCALCIFEROL
  8. LISINOPRIL. [Concomitant]
     Active Substance: LISINOPRIL
  9. OSCAL                              /00108001/ [Concomitant]
  10. POTASSIUM [Concomitant]
     Active Substance: POTASSIUM
  11. VICODIN [Concomitant]
     Active Substance: ACETAMINOPHEN\HYDROCODONE BITARTRATE
     Dosage: UNK UNK, PRN
  12. ATENOLOL. [Concomitant]
     Active Substance: ATENOLOL
  13. ZOLPIDEM [Concomitant]
     Active Substance: ZOLPIDEM\ZOLPIDEM TARTRATE

REACTIONS (1)
  - Injection site erythema [Recovered/Resolved]

NARRATIVE: CASE EVENT DATE: 201102
